FAERS Safety Report 4832049-9 (Version None)
Quarter: 2005Q4

REPORT INFORMATION
  Report Type: 
  Country: None (occurrence: None)
  Receive Date: 20051116
  Receipt Date: 20051101
  Transmission Date: 20060501
  Serious: Yes (Life-Threatening, Hospitalization)
  Sender: FDA-Public Use
  Company Number: 2005S1010719

PATIENT
  Age: 54 Year
  Sex: Female

DRUGS (11)
  1. LEXAPRO [Suspect]
     Indication: DEPRESSION
     Dosage: 20 MG;QD;ORAL
     Route: 048
     Dates: start: 20050223, end: 20050416
  2. MAXZIDE [Suspect]
     Indication: HYPERTENSION
     Dosage: ORAL
     Route: 048
     Dates: start: 19800101, end: 20050101
  3. MAVIK [Suspect]
     Indication: HYPERTENSION
     Dosage: 8 MG;PO
     Route: 048
     Dates: end: 20050101
  4. TRAZODONE [Concomitant]
  5. INDOMETHACIN [Concomitant]
  6. ERYTHROMYCIN [Concomitant]
  7. METOCLOPRAMIDE HYDROCHLORIDE [Concomitant]
  8. ESTROGENS CONJUGATED [Concomitant]
  9. CETIRIZINE HYDROCHLORIDE [Concomitant]
  10. MONTELUKAST SODIUM [Concomitant]
  11. MODAFINIL [Concomitant]

REACTIONS (3)
  - INTESTINAL OBSTRUCTION [None]
  - PANCREATIC PSEUDOCYST [None]
  - PANCREATITIS ACUTE [None]
